FAERS Safety Report 25064666 (Version 1)
Quarter: 2025Q1

REPORT INFORMATION
  Report Type: Spontaneous
  Country: CN (occurrence: CN)
  Receive Date: 20250311
  Receipt Date: 20250311
  Transmission Date: 20250408
  Serious: Yes (Hospitalization, Other)
  Sender: ABBVIE
  Company Number: CN-ABBVIE-6162743

PATIENT
  Age: 72 Year
  Sex: Male
  Weight: 85 kg

DRUGS (1)
  1. RINVOQ [Suspect]
     Active Substance: UPADACITINIB
     Indication: Dermatitis atopic
     Dosage: 15 MILLIGRAM
     Route: 048
     Dates: start: 20250127, end: 20250303

REACTIONS (10)
  - Monocyte count increased [Recovering/Resolving]
  - Lower respiratory tract infection [Recovering/Resolving]
  - Anaemia [Recovering/Resolving]
  - Arteriosclerosis coronary artery [Unknown]
  - Pneumonitis [Unknown]
  - Atelectasis [Unknown]
  - Interstitial lung disease [Unknown]
  - Emphysema [Unknown]
  - Aortic aneurysm [Unknown]
  - Infection [Unknown]

NARRATIVE: CASE EVENT DATE: 20250225
